FAERS Safety Report 7354557-1 (Version None)
Quarter: 2011Q1

REPORT INFORMATION
  Report Type: 
  Country: None (occurrence: None)
  Receive Date: 20110316
  Receipt Date: 20100921
  Transmission Date: 20110831
  Serious: Yes (Hospitalization)
  Sender: FDA-Public Use
  Company Number: US-BAYER-201013942NA

PATIENT
  Sex: Female
  Weight: 102.49 kg

DRUGS (2)
  1. YASMIN [Suspect]
     Route: 048
  2. YAZ [Suspect]
     Route: 048

REACTIONS (2)
  - PULMONARY EMBOLISM [None]
  - THROMBOSIS [None]
